FAERS Safety Report 19220800 (Version 1)
Quarter: 2021Q2

REPORT INFORMATION
  Report Type: Spontaneous
  Country: US (occurrence: US)
  Receive Date: 20210505
  Receipt Date: 20210505
  Transmission Date: 20210717
  Serious: No
  Sender: FDA-Public Use
  Company Number: US-JNJFOC-20210427813

PATIENT
  Age: 50 Year
  Sex: Female

DRUGS (5)
  1. TYLENOL [Suspect]
     Active Substance: ACETAMINOPHEN
     Indication: CHILLS
  2. TYLENOL [Suspect]
     Active Substance: ACETAMINOPHEN
     Indication: CHILLS
     Route: 065
  3. TYLENOL [Suspect]
     Active Substance: ACETAMINOPHEN
     Indication: HEADACHE
  4. TYLENOL [Suspect]
     Active Substance: ACETAMINOPHEN
     Indication: PAIN
  5. TYLENOL [Suspect]
     Active Substance: ACETAMINOPHEN
     Indication: MYALGIA

REACTIONS (1)
  - Product use in unapproved indication [Unknown]
